FAERS Safety Report 8394123 (Version 5)
Quarter: 2013Q1

REPORT INFORMATION
  Report Type: Spontaneous
  Country: US (occurrence: US)
  Receive Date: 20120207
  Receipt Date: 20121218
  Transmission Date: 20140127
  Serious: Yes (Other)
  Sender: FDA-Public Use
  Company Number: PHEH2012US002833

PATIENT
  Sex: Male

DRUGS (1)
  1. ZOMETA (ZOLEDRONATE) UNKNOWN [Suspect]
     Dosage: UNK
     Dates: start: 20070129, end: 20091019

REACTIONS (1)
  - Osteonecrosis of jaw [Unknown]
